FAERS Safety Report 10209929 (Version 3)
Quarter: 2014Q2

REPORT INFORMATION
  Report Type: Spontaneous
  Country: GB (occurrence: GB)
  Receive Date: 20140602
  Receipt Date: 20140606
  Transmission Date: 20141212
  Serious: Yes (Other)
  Sender: FDA-Public Use
  Company Number: US-ASTRAZENECA-2014SE34297

PATIENT
  Age: 48 Year
  Sex: Male
  Weight: 173 kg

DRUGS (3)
  1. AMIAS [Suspect]
     Indication: HYPERTENSION
     Route: 048
     Dates: start: 20140427
  2. PAROXETINE [Concomitant]
     Indication: DEPRESSION
     Route: 048
  3. PAROXETINE [Concomitant]
     Indication: DEPRESSION
     Route: 048
     Dates: start: 20140429

REACTIONS (4)
  - Fall [Recovered/Resolved]
  - Injury [Unknown]
  - Loss of consciousness [Recovered/Resolved]
  - Orthostatic hypotension [Recovered/Resolved]
